FAERS Safety Report 25552349 (Version 1)
Quarter: 2025Q3

REPORT INFORMATION
  Report Type: Spontaneous
  Country: US (occurrence: US)
  Receive Date: 20250715
  Receipt Date: 20250715
  Transmission Date: 20251020
  Serious: No
  Sender: ROCHE
  Company Number: US-ROCHE-10000334556

PATIENT
  Sex: Female

DRUGS (1)
  1. ACTEMRA ACTPEN [Suspect]
     Active Substance: TOCILIZUMAB
     Indication: Rheumatoid arthritis
     Route: 058
     Dates: start: 202506

REACTIONS (5)
  - Muscle spasms [Unknown]
  - Injection site pain [Unknown]
  - Contusion [Unknown]
  - Joint swelling [Unknown]
  - Arthralgia [Unknown]
